FAERS Safety Report 9299474 (Version 2)
Quarter: 2013Q2

REPORT INFORMATION
  Report Type: Report from Study
  Country: JP (occurrence: JP)
  Receive Date: 20130521
  Receipt Date: 20130626
  Transmission Date: 20140414
  Serious: Yes (Life-Threatening, Hospitalization)
  Sender: FDA-Public Use
  Company Number: JP-ROCHE-1223802

PATIENT
  Age: 73 Year
  Sex: Female

DRUGS (32)
  1. METHOXY POLYETHYLENE GLYCOL-EPOETIN BETA [Suspect]
     Indication: NEPHROGENIC ANAEMIA
     Route: 058
     Dates: start: 20121028, end: 20121111
  2. METHOXY POLYETHYLENE GLYCOL-EPOETIN BETA [Suspect]
     Indication: NEPHROGENIC ANAEMIA
     Route: 058
     Dates: start: 20121125, end: 20130219
  3. LINEZOLID [Suspect]
     Indication: PRODUCT USED FOR UNKNOWN INDICATION
     Route: 041
     Dates: start: 20121103, end: 20121112
  4. LINEZOLID [Suspect]
     Route: 048
     Dates: start: 20121113, end: 20121126
  5. MIYA BM [Concomitant]
     Route: 048
  6. CLEANAL [Concomitant]
     Route: 048
  7. ARTIST [Concomitant]
     Route: 048
     Dates: end: 20121108
  8. ARTIST [Concomitant]
     Route: 048
     Dates: start: 20121109
  9. SODIUM BICARBONATE [Concomitant]
     Route: 048
  10. LASIX [Concomitant]
     Route: 048
  11. ALLOPURINOL [Concomitant]
     Route: 048
     Dates: end: 20121101
  12. ALLOPURINOL [Concomitant]
     Route: 048
     Dates: start: 20121109
  13. POTASSIUM L-ASPARTATE [Concomitant]
     Route: 048
     Dates: start: 20121103, end: 20121108
  14. POTASSIUM L-ASPARTATE [Concomitant]
     Route: 048
     Dates: start: 20121109, end: 20121129
  15. POTASSIUM L-ASPARTATE [Concomitant]
     Route: 048
     Dates: start: 20121213, end: 20121220
  16. POTASSIUM L-ASPARTATE [Concomitant]
     Route: 048
     Dates: start: 20121221, end: 20130219
  17. POTASSIUM L-ASPARTATE [Concomitant]
     Route: 048
     Dates: start: 20130220
  18. LOPERAMIDE [Concomitant]
     Route: 048
     Dates: start: 20121115, end: 20121205
  19. LOPERAMIDE [Concomitant]
     Route: 048
     Dates: start: 20121206
  20. CRAVIT [Concomitant]
     Route: 048
     Dates: start: 20121202, end: 20121203
  21. CRAVIT [Concomitant]
     Dosage: EVERY OTHER DAY
     Route: 048
     Dates: start: 20121205, end: 20121209
  22. INCREMIN (JAPAN) [Concomitant]
     Route: 048
     Dates: start: 20121221
  23. SODIUM CHLORIDE [Concomitant]
     Route: 048
     Dates: start: 20130201
  24. SOLACET F [Concomitant]
     Route: 041
     Dates: start: 20121028, end: 20121120
  25. SOLACET F [Concomitant]
     Route: 041
     Dates: start: 20121121, end: 20121218
  26. PRIMPERAN (JAPAN) [Concomitant]
     Route: 041
     Dates: start: 20121028, end: 20121120
  27. PRIMPERAN (JAPAN) [Concomitant]
     Route: 041
     Dates: start: 20121121, end: 20121218
  28. PANTOL [Concomitant]
     Route: 041
     Dates: start: 20121028, end: 20121120
  29. PANTOL [Concomitant]
     Route: 041
     Dates: start: 20121121, end: 20121218
  30. FOSMICIN S [Concomitant]
     Dosage: EVERY OTHER DAY
     Route: 041
     Dates: start: 20121029, end: 20121102
  31. VANCOMYCIN HYDROCHLORIDE [Concomitant]
     Route: 041
     Dates: start: 20121029, end: 20121029
  32. CUBICIN [Concomitant]
     Dosage: EVERY OTHER DAY
     Route: 041
     Dates: start: 20121029, end: 20121102

REACTIONS (4)
  - Staphylococcal sepsis [Recovered/Resolved]
  - Pseudomembranous colitis [Recovered/Resolved]
  - Platelet count decreased [Unknown]
  - Disseminated intravascular coagulation [Recovered/Resolved]
